FAERS Safety Report 4635431-8 (Version None)
Quarter: 2005Q2

REPORT INFORMATION
  Report Type: 
  Country: None (occurrence: None)
  Receive Date: 20050413
  Receipt Date: 20050330
  Transmission Date: 20051028
  Serious: Yes (Hospitalization)
  Sender: FDA-Public Use
  Company Number: 1781-141

PATIENT
  Age: 61 Year
  Sex: Male
  Weight: 85.7298 kg

DRUGS (2)
  1. ASCORBIC ACID [Suspect]
     Indication: MULTIPLE MYELOMA
     Dosage: 1 GM TWICE WEEKLY IVI
     Route: 042
     Dates: start: 20040824, end: 20041108
  2. TRISENOX AND MELPHALAN [Suspect]
     Indication: MULTIPLE MYELOMA
     Dosage: 21 MG TWICE; 6MG X 4 DAYS
     Dates: start: 20040824, end: 20041108

REACTIONS (3)
  - MALIGNANT NEOPLASM PROGRESSION [None]
  - MULTIPLE MYELOMA [None]
  - OSTEOLYSIS [None]
